FAERS Safety Report 5794770-8 (Version None)
Quarter: 2008Q2

REPORT INFORMATION
  Report Type: 
  Country: None (occurrence: None)
  Receive Date: 20080626
  Receipt Date: 20080605
  Transmission Date: 20081010
  Serious: Yes (Hospitalization)
  Sender: FDA-Public Use
  Company Number: OMX-2008-00024

PATIENT
  Sex: Female

DRUGS (1)
  1. QUIXIL (FACTOR I (FIBRINOGEN)) (SPRAY (NOT INHALATION)) [Suspect]
     Indication: MUSCLE FLAP OPERATION
     Dosage: TOPICAL
     Route: 061

REACTIONS (3)
  - DONOR SITE COMPLICATION [None]
  - SEROMA [None]
  - WOUND INFECTION [None]
